FAERS Safety Report 11781936 (Version 1)
Quarter: 2015Q4

REPORT INFORMATION
  Report Type: Report from Study
  Country: IT (occurrence: IT)
  Receive Date: 20151126
  Receipt Date: 20151126
  Transmission Date: 20160305
  Serious: Yes (Other)
  Sender: FDA-Public Use
  Company Number: IT-ROCHE-1651488

PATIENT

DRUGS (5)
  1. CISPLATIN. [Suspect]
     Active Substance: CISPLATIN
     Indication: SMALL CELL LUNG CANCER EXTENSIVE STAGE
     Route: 042
  2. ETOPOSIDE. [Suspect]
     Active Substance: ETOPOSIDE
     Indication: SMALL CELL LUNG CANCER EXTENSIVE STAGE
     Route: 042
  3. BEVACIZUMAB [Suspect]
     Active Substance: BEVACIZUMAB
     Route: 042
  4. ETOPOSIDE. [Suspect]
     Active Substance: ETOPOSIDE
     Route: 048
  5. BEVACIZUMAB [Suspect]
     Active Substance: BEVACIZUMAB
     Indication: SMALL CELL LUNG CANCER EXTENSIVE STAGE
     Route: 042

REACTIONS (12)
  - Thrombocytopenia [Unknown]
  - Nausea [Unknown]
  - Fatigue [Unknown]
  - Hypertension [Unknown]
  - Epistaxis [Unknown]
  - Haemoptysis [Unknown]
  - Neutropenia [Unknown]
  - Anaemia [Unknown]
  - Stomatitis [Unknown]
  - Proteinuria [Unknown]
  - Vomiting [Unknown]
  - Diarrhoea [Unknown]
